FAERS Safety Report 4693842-9 (Version None)
Quarter: 2005Q2

REPORT INFORMATION
  Report Type: 
  Country: None (occurrence: None)
  Receive Date: 20050616
  Receipt Date: 20050603
  Transmission Date: 20051028
  Serious: Yes (Hospitalization)
  Sender: FDA-Public Use
  Company Number: 2005084887

PATIENT
  Age: 1 Year
  Sex: Female
  Weight: 11 kg

DRUGS (4)
  1. UNASYN [Suspect]
     Indication: PNEUMONIA
     Dosage: 1.2 GRAM (0.4 GRAM, TID), INTRAVENOUS
     Route: 042
     Dates: start: 20050415, end: 20050419
  2. MEDICON (DEXTROMETHORPHAN HYDROBROMIDE) [Concomitant]
  3. MUCODYNE (CARBOCISTEINE) [Concomitant]
  4. PERIACTIN [Concomitant]

REACTIONS (1)
  - HEPATIC FUNCTION ABNORMAL [None]
